FAERS Safety Report 7571767-9 (Version None)
Quarter: 2011Q2

REPORT INFORMATION
  Report Type: 
  Country: None (occurrence: None)
  Receive Date: 20110624
  Receipt Date: 20110620
  Transmission Date: 20111010
  Serious: Yes (Other)
  Sender: FDA-Public Use
  Company Number: US-PFIZER INC-2011043696

PATIENT
  Sex: Male
  Weight: 63.492 kg

DRUGS (2)
  1. CELEBREX [Suspect]
     Dosage: UNK
  2. CELEBREX [Suspect]
     Indication: ARTHRITIS
     Dosage: 200 MG, DAILY
     Route: 048
     Dates: start: 20080101, end: 20110201

REACTIONS (4)
  - JOINT INJURY [None]
  - CARTILAGE INJURY [None]
  - PAIN [None]
  - DYSPEPSIA [None]
